FAERS Safety Report 9783375 (Version 1)
Quarter: 2013Q4

REPORT INFORMATION
  Report Type: Spontaneous
  Country: BR (occurrence: BR)
  Receive Date: 20131226
  Receipt Date: 20131226
  Transmission Date: 20140711
  Serious: Yes (Other)
  Sender: FDA-Public Use
  Company Number: BR-BIOMARINAP-BR-2013-102134

PATIENT
  Sex: Female
  Weight: 27 kg

DRUGS (1)
  1. NAGLAZYME [Suspect]
     Indication: MUCOPOLYSACCHARIDOSIS VI
     Dosage: 25 MG, QW
     Route: 041
     Dates: start: 20071101

REACTIONS (6)
  - Spinal cord compression [Unknown]
  - Paralysis [Unknown]
  - Kyphosis [Unknown]
  - Scoliosis [Unknown]
  - Hypoglycaemia [Unknown]
  - Influenza [Unknown]
